FAERS Safety Report 16008788 (Version 4)
Quarter: 2019Q3

REPORT INFORMATION
  Report Type: Report from Study
  Country: US (occurrence: US)
  Receive Date: 20190226
  Receipt Date: 20190703
  Transmission Date: 20191004
  Serious: Yes (Hospitalization)
  Sender: FDA-Public Use
  Company Number: US-ACTELION-A-US2018-180191

PATIENT
  Age: 56 Year
  Sex: Female
  Weight: 59.41 kg

DRUGS (4)
  1. VELETRI [Suspect]
     Active Substance: EPOPROSTENOL
     Indication: PULMONARY HYPERTENSION
     Dosage: 9 NG/KG, PER MIN
     Route: 042
  2. VELETRI [Suspect]
     Active Substance: EPOPROSTENOL
     Dosage: 6 NG/KG, PER MIN
     Route: 042
  3. VELETRI [Suspect]
     Active Substance: EPOPROSTENOL
     Dosage: 7 NG/KG, PER MIN
     Route: 042
  4. VELETRI [Suspect]
     Active Substance: EPOPROSTENOL
     Dosage: 3 NG/KG, PER MIN
     Route: 042
     Dates: start: 20181002

REACTIONS (20)
  - Muscle spasms [Unknown]
  - Abdominal discomfort [Unknown]
  - Flushing [Unknown]
  - Breast cancer [Unknown]
  - Hyperhidrosis [Unknown]
  - Dizziness [Unknown]
  - Loss of consciousness [Unknown]
  - Malaise [Unknown]
  - Flatulence [Unknown]
  - Headache [Unknown]
  - Breast conserving surgery [Unknown]
  - Therapy non-responder [Unknown]
  - Abdominal pain upper [Unknown]
  - Device leakage [Unknown]
  - Nausea [Unknown]
  - Palpitations [Not Recovered/Not Resolved]
  - Diarrhoea [Unknown]
  - Arrhythmia [Unknown]
  - Dyspnoea [Unknown]
  - Fatigue [Unknown]

NARRATIVE: CASE EVENT DATE: 20190520
